FAERS Safety Report 6174851-X (Version None)
Quarter: 2009Q2

REPORT INFORMATION
  Report Type: 
  Country: None (occurrence: None)
  Receive Date: 20090430
  Receipt Date: 20090202
  Transmission Date: 20091009
  Serious: No
  Sender: FDA-Public Use
  Company Number: US-ASTRAZENECA-2008UW26744

PATIENT
  Age: 41 Year
  Sex: Female
  Weight: 60.8 kg

DRUGS (1)
  1. NEXIUM [Suspect]
     Indication: OESOPHAGEAL ACHALASIA
     Route: 048

REACTIONS (2)
  - ABDOMINAL DISCOMFORT [None]
  - SENSATION OF FOREIGN BODY [None]
